FAERS Safety Report 6834582-7 (Version None)
Quarter: 2010Q3

REPORT INFORMATION
  Report Type: 
  Country: None (occurrence: None)
  Receive Date: 20100712
  Receipt Date: 20070418
  Transmission Date: 20110219
  Serious: No
  Sender: FDA-Public Use
  Company Number: US-PFIZER INC-2007032038

PATIENT
  Sex: Female
  Weight: 59.09 kg

DRUGS (9)
  1. CHANTIX [Suspect]
     Indication: SMOKING CESSATION THERAPY
     Dates: start: 20070401
  2. ZOCOR [Concomitant]
  3. XANAX [Concomitant]
  4. ADVAIR DISKUS 100/50 [Concomitant]
  5. FLONASE [Concomitant]
  6. CLARINEX [Concomitant]
  7. VICODIN [Concomitant]
  8. WELLBUTRIN XL [Concomitant]
  9. NICOTINE [Concomitant]

REACTIONS (5)
  - BODY HEIGHT DECREASED [None]
  - CONTUSION [None]
  - DEPRESSION [None]
  - FIBROMYALGIA [None]
  - NAUSEA [None]
